FAERS Safety Report 8844372 (Version 3)
Quarter: 2012Q4

REPORT INFORMATION
  Report Type: 
  Country: JP (occurrence: JP)
  Receive Date: 20121017
  Receipt Date: 20121102
  Transmission Date: 20130627
  Serious: Yes (Other)
  Sender: FDA-Public Use
  Company Number: JP-UCBSA-068763

PATIENT
  Age: 77 Year
  Sex: Male

DRUGS (6)
  1. XYZAL [Suspect]
     Indication: RHINITIS
     Route: 048
     Dates: start: 20120901, end: 201209
  2. MYSLEE [Concomitant]
     Dosage: UNKNOWN DOSE
     Route: 048
     Dates: start: 20120901
  3. AMLODIPINE [Concomitant]
     Route: 048
  4. DIOVAN [Concomitant]
     Route: 048
  5. TENORMIN [Concomitant]
     Route: 048
     Dates: start: 20120901, end: 20120910
  6. ALCENOL [Concomitant]
     Route: 048
     Dates: start: 20120901, end: 201209

REACTIONS (2)
  - Loss of consciousness [Recovered/Resolved]
  - Blood pressure decreased [Unknown]
